FAERS Safety Report 22376211 (Version 7)
Quarter: 2024Q3

REPORT INFORMATION
  Report Type: Spontaneous
  Country: US (occurrence: US)
  Receive Date: 20230527
  Receipt Date: 20240919
  Transmission Date: 20241016
  Serious: No
  Sender: NOVARTIS
  Company Number: US-002147023-NVSC2023US121943

PATIENT
  Age: 12 Year
  Sex: Female

DRUGS (1)
  1. MEKINIST [Suspect]
     Active Substance: TRAMETINIB DIMETHYL SULFOXIDE
     Indication: Brain neoplasm malignant
     Dosage: 1 MG, QD
     Route: 048
     Dates: start: 202305

REACTIONS (10)
  - Acne [Unknown]
  - Gastrointestinal disorder [Unknown]
  - General physical condition abnormal [Unknown]
  - Decreased appetite [Unknown]
  - Visual impairment [Unknown]
  - Fatigue [Recovering/Resolving]
  - Asthenia [Unknown]
  - Swelling face [Unknown]
  - Ear pain [Unknown]
  - Product use in unapproved indication [Unknown]

NARRATIVE: CASE EVENT DATE: 20230501
